FAERS Safety Report 4964266-1 (Version None)
Quarter: 2006Q1

REPORT INFORMATION
  Report Type: 
  Country: None (occurrence: None)
  Receive Date: 20060331
  Receipt Date: 20060314
  Transmission Date: 20060701
  Serious: No
  Sender: FDA-Public Use
  Company Number: GB200601003276

PATIENT
  Age: 55 Year
  Sex: Female
  Weight: 58 kg

DRUGS (3)
  1. YENTREVE (DULOXETINE HYDROCHLORIDE) [Suspect]
     Indication: NEUROPATHY PERIPHERAL
     Dosage: 40 MG, DAILY (1/D)
     Dates: start: 20051201, end: 20060119
  2. TRAMADOL HCL [Concomitant]
  3. TOPIRAMATE [Concomitant]

REACTIONS (4)
  - ANHIDROSIS [None]
  - BODY TEMPERATURE INCREASED [None]
  - DIARRHOEA [None]
  - HEPATIC PAIN [None]
